FAERS Safety Report 17729516 (Version 1)
Quarter: 2020Q2

REPORT INFORMATION
  Report Type: Report from Study
  Country: BR (occurrence: BR)
  Receive Date: 20200430
  Receipt Date: 20200430
  Transmission Date: 20200714
  Serious: Yes (Other)
  Sender: FDA-Public Use
  Company Number: PHHY2015BR087447

PATIENT
  Sex: Female
  Weight: 65 kg

DRUGS (4)
  1. DIOVAN AMLO FIX [Suspect]
     Active Substance: AMLODIPINE\VALSARTAN
     Dosage: 1 DF, QD (VALSARATAN 320 MG, AMLODIPINE 25MG), 3 WEEKS AGO
     Route: 048
  2. DIOVAN AMLO FIX [Suspect]
     Active Substance: AMLODIPINE\VALSARTAN
     Indication: HYPERTENSION
     Dosage: UNK UNK, QD (VALSARATAN 160 MG, AMLODIPINE UNKNOWN)
     Route: 048
  3. DIOVAN AMLO FIX [Suspect]
     Active Substance: AMLODIPINE\VALSARTAN
     Dosage: 1 DF, QD (VALSARATAN 320 MG, AMLODIPINE 5 MG)
     Route: 048
     Dates: end: 201809
  4. DIOVAN AMLO FIX [Suspect]
     Active Substance: AMLODIPINE\VALSARTAN
     Dosage: UNK UNK, QD (VALSARATAN 160 MG, AMLODIPINE UNKNOWN)
     Route: 048
     Dates: end: 2018

REACTIONS (10)
  - Joint swelling [Not Recovered/Not Resolved]
  - Blood pressure fluctuation [Recovered/Resolved]
  - Neck pain [Recovered/Resolved]
  - Neck pain [Recovered/Resolved]
  - Blood pressure increased [Recovered/Resolved]
  - Malaise [Recovered/Resolved]
  - Malaise [Recovered/Resolved]
  - Drug ineffective [Unknown]
  - Urinary tract infection [Recovering/Resolving]
  - Anxiety [Recovered/Resolved]

NARRATIVE: CASE EVENT DATE: 2005
